FAERS Safety Report 8152602-7 (Version None)
Quarter: 2012Q1

REPORT INFORMATION
  Report Type: 
  Country: None (occurrence: None)
  Receive Date: 20120215
  Receipt Date: 20120208
  Transmission Date: 20120608
  Serious: Yes (Hospitalization)
  Sender: FDA-Public Use
  Company Number: ACO_29347_2012

PATIENT
  Age: 59 Year
  Sex: Female

DRUGS (2)
  1. AVONEX (INTERFERON BETA-A) [Concomitant]
  2. AMPYRA [Suspect]
     Indication: PRODUCT USED FOR UNKNOWN INDICATION
     Dosage: 10 MG, BID
     Dates: start: 20100701, end: 20111001

REACTIONS (1)
  - HIP ARTHROPLASTY [None]
